FAERS Safety Report 9695002 (Version 1)
Quarter: 2013Q4

REPORT INFORMATION
  Report Type: Spontaneous
  Country: US (occurrence: US)
  Receive Date: 20131119
  Receipt Date: 20131119
  Transmission Date: 20140711
  Serious: Yes (Other)
  Sender: FDA-Public Use
  Company Number: US-JNJFOC-20131106844

PATIENT
  Age: 10 Year
  Sex: Female

DRUGS (6)
  1. DOXORUBICIN HYDROCHLORIDE [Suspect]
     Indication: SMALL CELL CARCINOMA
     Route: 042
  2. VINBLASTINE [Suspect]
     Indication: SMALL CELL CARCINOMA
     Route: 065
  3. CISPLATIN [Suspect]
     Indication: SMALL CELL CARCINOMA
     Route: 065
  4. CYCLOPHOSPHAMIDE [Suspect]
     Indication: SMALL CELL CARCINOMA
     Route: 065
  5. BLEOMYCIN [Suspect]
     Indication: SMALL CELL CARCINOMA
     Dosage: 15 IU/M2
     Route: 065
  6. ETOPOSIDE [Suspect]
     Indication: SMALL CELL CARCINOMA
     Route: 065

REACTIONS (4)
  - Bone marrow failure [Unknown]
  - Febrile neutropenia [Unknown]
  - Hypomagnesaemia [Unknown]
  - Decreased appetite [Unknown]
